FAERS Safety Report 16053002 (Version 2)
Quarter: 2019Q2

REPORT INFORMATION
  Report Type: Spontaneous
  Country: US (occurrence: US)
  Receive Date: 20190308
  Receipt Date: 20190403
  Transmission Date: 20190711
  Serious: Yes (Other)
  Sender: FDA-Public Use
  Company Number: US-GLAXOSMITHKLINE-US2019041478

PATIENT
  Sex: Female
  Weight: 73.16 kg

DRUGS (1)
  1. BENLYSTA [Suspect]
     Active Substance: BELIMUMAB
     Indication: SYSTEMIC LUPUS ERYTHEMATOSUS
     Dosage: 200 MG, UNK
     Route: 058
     Dates: start: 20180310, end: 20181230

REACTIONS (5)
  - Systemic lupus erythematosus [Unknown]
  - Inflammatory marker increased [Unknown]
  - Malaise [Recovering/Resolving]
  - Rheumatoid arthritis [Unknown]
  - Laboratory test abnormal [Unknown]
